FAERS Safety Report 5109462-8 (Version None)
Quarter: 2006Q3

REPORT INFORMATION
  Report Type: 
  Country: None (occurrence: None)
  Receive Date: 20060920
  Receipt Date: 20060908
  Transmission Date: 20061208
  Serious: Yes (Hospitalization)
  Sender: FDA-Public Use
  Company Number: US-BOEHRINGER INGELHEIM PHARMACEUTICALS, INC.-2006-BP-11038BP

PATIENT
  Age: 47 Year
  Sex: Male

DRUGS (3)
  1. AGGRENOX [Suspect]
     Indication: VASCULAR SHUNT
     Dates: start: 20050113, end: 20050406
  2. PLACEBO CAPSULES (BLIND) [Suspect]
     Indication: VASCULAR SHUNT
     Dates: start: 20050113, end: 20050406
  3. MINOXIDIL [Suspect]

REACTIONS (6)
  - ATRIAL FLUTTER [None]
  - BRONCHOSPASM [None]
  - CARDIAC TAMPONADE [None]
  - CHEST PAIN [None]
  - HYPOTENSION [None]
  - PERICARDIAL EFFUSION [None]
